FAERS Safety Report 9261276 (Version 3)
Quarter: 2015Q2

REPORT INFORMATION
  Report Type: Spontaneous
  Country: US (occurrence: US)
  Receive Date: 20130429
  Receipt Date: 20150422
  Transmission Date: 20150821
  Serious: Yes (Disabling, Other)
  Sender: FDA-Public Use
  Company Number: US-009507513-1304USA010155

PATIENT
  Sex: Male

DRUGS (3)
  1. PROPECIA [Suspect]
     Active Substance: FINASTERIDE
     Indication: ANDROGENETIC ALOPECIA
     Dosage: 1 MG, QD
     Route: 048
     Dates: start: 20090520
  2. PROSCAR [Suspect]
     Active Substance: FINASTERIDE
     Indication: ALOPECIA
     Dosage: 1.25 MG, QD
     Route: 048
     Dates: start: 1998, end: 2010
  3. FINASTERIDE. [Suspect]
     Active Substance: FINASTERIDE
     Indication: ALOPECIA
     Dosage: 5 MG, QD
     Route: 048
     Dates: start: 2003, end: 2010

REACTIONS (16)
  - Anxiety [Not Recovered/Not Resolved]
  - Erectile dysfunction [Unknown]
  - Suicidal ideation [Recovered/Resolved]
  - Genital hypoaesthesia [Unknown]
  - Eye injury [Not Recovered/Not Resolved]
  - Drug administration error [Unknown]
  - Depression [Recovered/Resolved]
  - Brain injury [Unknown]
  - Sexual dysfunction [Not Recovered/Not Resolved]
  - Cognitive disorder [Recovered/Resolved]
  - Hormone level abnormal [Unknown]
  - Wrong technique in drug usage process [Unknown]
  - Penile size reduced [Unknown]
  - Loss of libido [Unknown]
  - Soft tissue injury [Unknown]
  - Ejaculation disorder [Unknown]

NARRATIVE: CASE EVENT DATE: 1998
